FAERS Safety Report 9375940 (Version 1)
Quarter: 2013Q2

REPORT INFORMATION
  Report Type: Spontaneous
  Country: CA (occurrence: CA)
  Receive Date: 20130628
  Receipt Date: 20130628
  Transmission Date: 20140414
  Serious: Yes (Other)
  Sender: FDA-Public Use
  Company Number: CA-RB-048930-13

PATIENT
  Age: 29 Year
  Sex: Female

DRUGS (8)
  1. SUBOXONE TABLET [Suspect]
     Indication: DRUG DEPENDENCE
     Route: 060
     Dates: start: 201011, end: 20121217
  2. SUBOXONE TABLET [Suspect]
     Route: 060
     Dates: start: 201303
  3. SUBUTEX [Suspect]
     Indication: DRUG DEPENDENCE
     Route: 065
     Dates: start: 20121217, end: 20130316
  4. SUBUTEX [Suspect]
     Route: 065
     Dates: start: 20121217, end: 20130316
  5. HYDROMORPHONE [Suspect]
     Indication: PRODUCT USED FOR UNKNOWN INDICATION
     Route: 065
     Dates: start: 2008, end: 2012
  6. NICOTINE [Suspect]
     Indication: PRODUCT USED FOR UNKNOWN INDICATION
     Dosage: 10 CIGARETTES DAILY
     Route: 055
  7. CYMBALTA [Suspect]
     Indication: DEPRESSION
     Route: 065
     Dates: start: 2012
  8. TECTA [Suspect]
     Indication: GASTROOESOPHAGEAL REFLUX DISEASE
     Route: 065
     Dates: start: 2012

REACTIONS (5)
  - Exposure during pregnancy [Recovered/Resolved]
  - Drug abuse [Recovered/Resolved]
  - Hepatitis C [Unknown]
  - Premature separation of placenta [Recovered/Resolved]
  - Premature delivery [Recovered/Resolved]
